FAERS Safety Report 14852385 (Version 3)
Quarter: 2018Q2

REPORT INFORMATION
  Report Type: Spontaneous
  Country: US (occurrence: US)
  Receive Date: 20180507
  Receipt Date: 20180523
  Transmission Date: 20180711
  Serious: No
  Sender: FDA-Public Use
  Company Number: US-PFIZER INC-2018182851

PATIENT
  Sex: Female

DRUGS (2)
  1. METHOTREXATE SODIUM. [Suspect]
     Active Substance: METHOTREXATE SODIUM
     Indication: RHEUMATOID ARTHRITIS
     Dosage: UNK
     Dates: start: 199501, end: 201401
  2. HUMIRA [Concomitant]
     Active Substance: ADALIMUMAB
     Dosage: UNK
     Dates: start: 201201, end: 201401

REACTIONS (2)
  - Migraine [Unknown]
  - Fungal infection [Unknown]
